FAERS Safety Report 7797001-2 (Version None)
Quarter: 2011Q4

REPORT INFORMATION
  Report Type: 
  Country: None (occurrence: None)
  Receive Date: 20111005
  Receipt Date: 20111005
  Transmission Date: 20120403
  Serious: Yes (Death)
  Sender: FDA-Public Use
  Company Number: None

PATIENT
  Age: 48 Year
  Sex: Male
  Weight: 110 kg

DRUGS (1)
  1. PROLEUKIN [Suspect]
     Indication: METASTATIC MALIGNANT MELANOMA
     Dosage: 63.12 MILLION UNITS
     Route: 041
     Dates: start: 20110927, end: 20110929

REACTIONS (4)
  - DRUG INTOLERANCE [None]
  - CARDIO-RESPIRATORY ARREST [None]
  - NEOPLASM PROGRESSION [None]
  - METASTATIC MALIGNANT MELANOMA [None]
